FAERS Safety Report 7542521-9 (Version None)
Quarter: 2011Q2

REPORT INFORMATION
  Report Type: 
  Country: None (occurrence: None)
  Receive Date: 20110613
  Receipt Date: 20110608
  Transmission Date: 20111010
  Serious: Yes (Death, Hospitalization)
  Sender: FDA-Public Use
  Company Number: BR-ABBOTT-11P-020-0731245-00

PATIENT
  Sex: Female
  Weight: 55 kg

DRUGS (10)
  1. HUMIRA [Suspect]
     Indication: RHEUMATOID ARTHRITIS
     Route: 058
  2. TRANDRILAX [Suspect]
     Indication: PAIN IN EXTREMITY
     Route: 048
     Dates: start: 20110603
  3. ATROPA BELLADONNA/ALOIN [Concomitant]
     Indication: RENAL DISORDER
     Dosage: ONE TIME DAILY IF PRESENTS WITH PAIN
     Route: 048
  4. DICLOFENAC/ FAMOTIDINE/ METHOTREXATE/CHLOROQUINE/PREDNISONE [Concomitant]
     Indication: ARTHRITIS
     Dosage: 60MG/20MG/1MG/100MG/5MG
  5. DICLOFENAC/ FAMOTIDINE/ METHOTREXATE/CHLOROQUINE/PREDNISONE [Concomitant]
     Indication: OSTEOARTHRITIS
  6. HYDROCHLOROTHIAZIDE [Concomitant]
     Indication: HYPERTENSION
     Route: 048
  7. CAPTOPRIL [Concomitant]
     Indication: HYPERTENSION
     Route: 048
  8. PETRAMINE [Concomitant]
     Indication: HYPERSENSITIVITY
     Route: 048
     Dates: start: 20100101
  9. A/H1N1 INFLUENZA PANDEMIC VACCINE [Suspect]
     Indication: PRODUCT USED FOR UNKNOWN INDICATION
     Dates: start: 20110603
  10. ATROPA BELLADONNA/ALOIN [Concomitant]
     Indication: BLADDER DISORDER

REACTIONS (6)
  - DIARRHOEA [None]
  - SCIATICA [None]
  - INTESTINAL OBSTRUCTION [None]
  - ABDOMINAL PAIN UPPER [None]
  - CONSTIPATION [None]
  - GASTRIC DISORDER [None]
